FAERS Safety Report 10525862 (Version 2)
Quarter: 2014Q4

REPORT INFORMATION
  Report Type: Report from Study
  Country: CN (occurrence: CN)
  Receive Date: 20141017
  Receipt Date: 20141027
  Transmission Date: 20150528
  Serious: Yes (Death)
  Sender: FDA-Public Use
  Company Number: PHHY2014CN134330

PATIENT
  Age: 42 Year
  Sex: Male

DRUGS (1)
  1. TASIGNA [Suspect]
     Active Substance: NILOTINIB
     Indication: CHRONIC MYELOID LEUKAEMIA
     Dosage: 800 MG, QD
     Route: 048
     Dates: start: 20110718, end: 201403

REACTIONS (4)
  - Anaemia [Fatal]
  - Drug ineffective [Unknown]
  - Cardiac failure [Fatal]
  - Infection [Fatal]

NARRATIVE: CASE EVENT DATE: 20140420
